FAERS Safety Report 4164051 (Version 5)
Quarter: 2013Q1

REPORT INFORMATION
  Report Type: Spontaneous
  Country: GB (occurrence: GB)
  Receive Date: 20040625
  Receipt Date: 20130320
  Transmission Date: 20140127
  Serious: Yes (Hospitalization)
  Sender: FDA-Public Use
  Company Number: GB-JNJFOC-20040603867

PATIENT
  Age: 21 Year
  Sex: Female

DRUGS (1)
  1. IBUPROFEN [Suspect]
     Indication: PRODUCT USED FOR UNKNOWN INDICATION
     Route: 048

REACTIONS (6)
  - Intentional overdose [Unknown]
  - Platelet disorder [Unknown]
  - Oligohydramnios [Recovered/Resolved]
  - Platelet aggregation decreased [Unknown]
  - Induced labour [Unknown]
  - Exposure during pregnancy [Unknown]
